FAERS Safety Report 24668700 (Version 2)
Quarter: 2025Q1

REPORT INFORMATION
  Report Type: Report from Study
  Country: US (occurrence: US)
  Receive Date: 20241127
  Receipt Date: 20250111
  Transmission Date: 20250408
  Serious: Yes (Other)
  Sender: ACADIA PHARMACEUTICALS
  Company Number: US-ACADIA PHARMACEUTICALS INC.-ACA-2024-TRF-007390

PATIENT
  Sex: Female

DRUGS (7)
  1. DAYBUE [Suspect]
     Active Substance: TROFINETIDE
     Indication: Rett syndrome
     Dosage: 50 MILLILITER, BID
     Route: 048
  2. DAYBUE [Suspect]
     Active Substance: TROFINETIDE
     Route: 048
  3. DAYBUE [Suspect]
     Active Substance: TROFINETIDE
     Route: 048
  4. DAYBUE [Suspect]
     Active Substance: TROFINETIDE
     Route: 048
  5. DAYBUE [Suspect]
     Active Substance: TROFINETIDE
     Route: 048
  6. DAYBUE [Suspect]
     Active Substance: TROFINETIDE
     Route: 048
  7. DAYBUE [Suspect]
     Active Substance: TROFINETIDE
     Dosage: 40 MILLILITER, BID
     Route: 048

REACTIONS (7)
  - Petit mal epilepsy [Not Recovered/Not Resolved]
  - Unresponsive to stimuli [Not Recovered/Not Resolved]
  - Seizure [Not Recovered/Not Resolved]
  - Bruxism [Not Recovered/Not Resolved]
  - Underdose [Not Recovered/Not Resolved]
  - Increased appetite [Not Recovered/Not Resolved]
  - Staring [Not Recovered/Not Resolved]
